FAERS Safety Report 15925174 (Version 7)
Quarter: 2020Q4

REPORT INFORMATION
  Report Type: Report from Study
  Country: AU (occurrence: AU)
  Receive Date: 20190206
  Receipt Date: 20201101
  Transmission Date: 20210113
  Serious: Yes (Hospitalization, Disabling, Other)
  Sender: FDA-Public Use
  Company Number: AU-ROCHE-2249463

PATIENT
  Age: 56 Year
  Sex: Female
  Weight: 68 kg

DRUGS (22)
  1. PARACETAMOL [Concomitant]
     Active Substance: ACETAMINOPHEN
     Indication: ARTHRALGIA
     Route: 048
     Dates: start: 20190123, end: 20190123
  2. CARBOPLATIN. [Suspect]
     Active Substance: CARBOPLATIN
     Indication: SMALL CELL LUNG CANCER EXTENSIVE STAGE
     Dosage: TO ACHIEVE AN INITIAL TARGET AUC OF 5 MG/ML/MIN FOR FOUR CYCLES?DATE AND TIME OF MOST RECENT DOSE OF
     Route: 042
     Dates: start: 20161115
  3. ETOPOSIDE. [Suspect]
     Active Substance: ETOPOSIDE
     Indication: SMALL CELL LUNG CANCER EXTENSIVE STAGE
     Dosage: FOR FOUR CYCLES?DATE AND TIME OF MOST RECENT DOSE OF ETOPOSIDE OF 158 MG PRIOR TO SAE ONSET: 19/JAN/
     Route: 042
     Dates: start: 20161115
  4. CODEINE LINCTUS [Concomitant]
     Active Substance: CHLOROFORM\CODEINE PHOSPHATE\DRIMIA MARITIMA BULB
     Indication: COUGH
     Dates: start: 20161228
  5. XYLOCAINE VISCOUS [Concomitant]
     Active Substance: LIDOCAINE HYDROCHLORIDE
     Indication: ODYNOPHAGIA
     Route: 048
     Dates: start: 20181231, end: 20190107
  6. SERETIDE [Concomitant]
     Active Substance: FLUTICASONE PROPIONATE\SALMETEROL XINAFOATE
     Indication: ASTHMA
     Dosage: 250/25
     Route: 055
     Dates: start: 20120101
  7. ONDANSETRON [Concomitant]
     Active Substance: ONDANSETRON
     Indication: NAUSEA
     Route: 048
     Dates: start: 20190122, end: 20190207
  8. FRUSEMIDE [Concomitant]
     Active Substance: FUROSEMIDE
     Route: 042
     Dates: start: 20190320, end: 20190320
  9. SALBUTAMOL [Concomitant]
     Active Substance: ALBUTEROL
     Indication: ASTHMA
     Dosage: 3 PUFF
     Dates: start: 20060101
  10. SERETIDE [Concomitant]
     Active Substance: FLUTICASONE PROPIONATE\SALMETEROL XINAFOATE
     Indication: EMPHYSEMA
  11. PANTOPRAZOLE [Concomitant]
     Active Substance: PANTOPRAZOLE
     Route: 048
     Dates: start: 20190125
  12. NICOTINE. [Concomitant]
     Active Substance: NICOTINE
     Route: 062
     Dates: start: 20190121, end: 20190125
  13. CLEXANE [Concomitant]
     Active Substance: ENOXAPARIN SODIUM
     Route: 058
     Dates: start: 20190121, end: 20190131
  14. METOCLOPRAMIDE. [Concomitant]
     Active Substance: METOCLOPRAMIDE
     Indication: NAUSEA
     Route: 048
     Dates: start: 20181225
  15. METHYLPREDNISOLONE. [Concomitant]
     Active Substance: METHYLPREDNISOLONE
     Route: 042
  16. MYCOPHENOLATE [Concomitant]
     Active Substance: MYCOPHENOLIC ACID
     Route: 048
     Dates: start: 20190319
  17. ATEZOLIZUMAB. [Suspect]
     Active Substance: ATEZOLIZUMAB
     Indication: SMALL CELL LUNG CANCER EXTENSIVE STAGE
     Dosage: DATE AND TIME OF MOST RECENT DOSE OF ATEZOLIZUMAB PRIOR TO THE EVENT: 31/DEC/2018 AT 12:13
     Route: 042
     Dates: start: 20161115
  18. NICOTINE. [Concomitant]
     Active Substance: NICOTINE
     Route: 062
     Dates: start: 20181127, end: 20181203
  19. SALBUTAMOL [Concomitant]
     Active Substance: ALBUTEROL
     Indication: EMPHYSEMA
  20. BACTRIM [Concomitant]
     Active Substance: SULFAMETHOXAZOLE\TRIMETHOPRIM
     Route: 048
     Dates: start: 20190201
  21. VALACICLOVIR [Concomitant]
     Active Substance: VALACYCLOVIR HYDROCHLORIDE
     Route: 048
     Dates: start: 20190131
  22. AUGMENTIN DUO FORTE [Concomitant]
     Active Substance: AMOXICILLIN\CLAVULANATE POTASSIUM
     Indication: LOWER RESPIRATORY TRACT INFECTION
     Route: 048
     Dates: start: 20190304, end: 20190411

REACTIONS (2)
  - Paraneoplastic syndrome [Not Recovered/Not Resolved]
  - Paraneoplastic syndrome [Unknown]

NARRATIVE: CASE EVENT DATE: 20181210
